FAERS Safety Report 18725521 (Version 1)
Quarter: 2021Q1

REPORT INFORMATION
  Report Type: Spontaneous
  Country: US (occurrence: US)
  Receive Date: 20210111
  Receipt Date: 20210111
  Transmission Date: 20210419
  Serious: Yes (Hospitalization)
  Sender: FDA-Public Use
  Company Number: US-MYLANLABS-2021M1000617

PATIENT
  Age: 60 Year
  Sex: Male

DRUGS (4)
  1. IODINE (131 I) [Suspect]
     Active Substance: SODIUM IODIDE I-131
     Indication: BASEDOW^S DISEASE
     Dosage: UNK
     Route: 042
  2. METOPROLOL. [Concomitant]
     Active Substance: METOPROLOL
     Indication: PRODUCT USED FOR UNKNOWN INDICATION
     Dosage: 75 MILLIGRAM, BID
     Route: 065
  3. IODINE (131 I) [Suspect]
     Active Substance: SODIUM IODIDE I-131
     Dosage: 12.3 MCI
     Route: 042
  4. METHIMAZOLE. [Suspect]
     Active Substance: METHIMAZOLE
     Indication: PRODUCT USED FOR UNKNOWN INDICATION
     Dosage: 40 MILLIGRAM, QD
     Route: 065

REACTIONS (3)
  - Thyrotoxic crisis [Recovering/Resolving]
  - Rebound effect [Recovering/Resolving]
  - Hyperthyroidism [Recovering/Resolving]
